FAERS Safety Report 5722177-8 (Version None)
Quarter: 2008Q2

REPORT INFORMATION
  Report Type: 
  Country: None (occurrence: None)
  Receive Date: 20080429
  Receipt Date: 20080417
  Transmission Date: 20081010
  Serious: Yes (Other)
  Sender: FDA-Public Use
  Company Number: US-PFIZER INC-2008036146

PATIENT
  Sex: Female
  Weight: 79.5 kg

DRUGS (8)
  1. CHANTIX [Suspect]
     Indication: SMOKING CESSATION THERAPY
  2. LIPITOR [Concomitant]
  3. AMLODIPINE BESILATE [Concomitant]
  4. NORVASC [Concomitant]
  5. AMITRIPTYLINE HCL [Concomitant]
  6. INSULIN [Concomitant]
  7. METOPROLOL TARTRATE [Concomitant]
  8. ACETYLSALICYLIC ACID SRT [Concomitant]

REACTIONS (3)
  - BLOOD PRESSURE INCREASED [None]
  - HEART RATE INCREASED [None]
  - THYROIDITIS [None]
